FAERS Safety Report 8227148-8 (Version None)
Quarter: 2012Q1

REPORT INFORMATION
  Report Type: 
  Country: None (occurrence: None)
  Receive Date: 20120322
  Receipt Date: 20120314
  Transmission Date: 20120608
  Serious: Yes (Hospitalization, Other)
  Sender: FDA-Public Use
  Company Number: US-JNJFOC-20100806100

PATIENT
  Sex: Female

DRUGS (9)
  1. LISINOPRIL [Concomitant]
     Indication: HYPERTENSION
     Route: 065
  2. LEVAQUIN [Suspect]
     Indication: GASTROENTERITIS SALMONELLA
     Route: 048
     Dates: start: 20000721, end: 20000726
  3. NORVASC [Concomitant]
     Indication: HYPERTENSION
     Route: 065
  4. ASPIRIN [Concomitant]
     Indication: THROMBOSIS PROPHYLAXIS
     Route: 065
  5. SYNTHROID [Concomitant]
     Indication: THYROID FUNCTION TEST ABNORMAL
     Route: 065
  6. PAXIL [Concomitant]
     Indication: DEPRESSION
     Route: 065
  7. ATENOLOL [Concomitant]
     Indication: HYPERTENSION
     Route: 065
  8. LEVAQUIN [Suspect]
     Indication: SEPSIS
     Route: 048
     Dates: start: 20000721, end: 20000726
  9. WELLBUTRIN [Concomitant]
     Indication: DEPRESSION
     Route: 065

REACTIONS (6)
  - TENDON RUPTURE [None]
  - DEPRESSION [None]
  - HIP ARTHROPLASTY [None]
  - HIP SURGERY [None]
  - STRESS [None]
  - ROTATOR CUFF SYNDROME [None]
